FAERS Safety Report 13636678 (Version 5)
Quarter: 2017Q4

REPORT INFORMATION
  Report Type: Spontaneous
  Country: US (occurrence: US)
  Receive Date: 20170609
  Receipt Date: 20171123
  Transmission Date: 20180320
  Serious: No
  Sender: FDA-Public Use
  Company Number: US-BEH-2017080949

PATIENT
  Sex: Female

DRUGS (5)
  1. PRIVIGEN [Suspect]
     Active Substance: HUMAN IMMUNOGLOBULIN G
     Dosage: UNK
     Route: 065
  2. PRIVIGEN [Suspect]
     Active Substance: HUMAN IMMUNOGLOBULIN G
     Dosage: UNK
     Route: 065
  3. PRIVIGEN [Suspect]
     Active Substance: HUMAN IMMUNOGLOBULIN G
     Dosage: UNK
     Route: 065
  4. PRIVIGEN [Suspect]
     Active Substance: HUMAN IMMUNOGLOBULIN G
     Indication: COMPLEX REGIONAL PAIN SYNDROME
     Dosage: UNK, QD
     Route: 065
     Dates: start: 20160413, end: 201604
  5. PRIVIGEN [Suspect]
     Active Substance: HUMAN IMMUNOGLOBULIN G
     Dosage: UNK, QMT
     Route: 065
     Dates: start: 201605, end: 20161018

REACTIONS (3)
  - Therapeutic response unexpected [Recovered/Resolved]
  - Blood pressure decreased [Recovered/Resolved]
  - Analgesic therapy [Recovered/Resolved]

NARRATIVE: CASE EVENT DATE: 20161018
